FAERS Safety Report 6833789-2 (Version None)
Quarter: 2010Q3

REPORT INFORMATION
  Report Type: 
  Country: None (occurrence: None)
  Receive Date: 20100712
  Receipt Date: 20070403
  Transmission Date: 20110219
  Serious: Yes (Other)
  Sender: FDA-Public Use
  Company Number: US-PFIZER INC-2007026597

PATIENT

DRUGS (1)
  1. CHANTIX [Suspect]

REACTIONS (2)
  - ANGER [None]
  - PSYCHIATRIC SYMPTOM [None]
